FAERS Safety Report 11681563 (Version 3)
Quarter: 2016Q1

REPORT INFORMATION
  Report Type: Spontaneous
  Country: US (occurrence: US)
  Receive Date: 20151029
  Receipt Date: 20160212
  Transmission Date: 20160525
  Serious: No
  Sender: FDA-Public Use
  Company Number: US-PFIZER INC-2015364216

PATIENT
  Age: 43 Year
  Sex: Male

DRUGS (1)
  1. LIPITOR [Suspect]
     Active Substance: ATORVASTATIN CALCIUM
     Indication: BLOOD CHOLESTEROL INCREASED
     Dosage: 80 MG, UNK (1X)
     Dates: start: 20150908, end: 201510

REACTIONS (2)
  - Muscle spasms [Recovered/Resolved]
  - Arthritis [Recovered/Resolved]
